FAERS Safety Report 6516889-6 (Version None)
Quarter: 2009Q4

REPORT INFORMATION
  Report Type: 
  Country: None (occurrence: None)
  Receive Date: 20091223
  Receipt Date: 20091209
  Transmission Date: 20100525
  Serious: Yes (Other)
  Sender: FDA-Public Use
  Company Number: FR-PFIZER INC-2009308653

PATIENT
  Age: 45 Year
  Sex: Male

DRUGS (1)
  1. ORELOX [Suspect]
     Indication: INFLUENZA
     Dosage: 100 MG, 2X/DAY
     Route: 048
     Dates: start: 20091123

REACTIONS (3)
  - EPILEPSY [None]
  - HEADACHE [None]
  - VERTIGO [None]
